FAERS Safety Report 17102553 (Version 2)
Quarter: 2020Q2

REPORT INFORMATION
  Report Type: Spontaneous
  Country: US (occurrence: US)
  Receive Date: 20191202
  Receipt Date: 20200617
  Transmission Date: 20200713
  Serious: Yes (Other)
  Sender: FDA-Public Use
  Company Number: US-AMGEN-USASP2019197536

PATIENT
  Sex: Female

DRUGS (2)
  1. HUMIRA [Suspect]
     Active Substance: ADALIMUMAB
     Indication: ANKYLOSING SPONDYLITIS
     Dosage: WEEKLY, BI-WEEKLY AND 40 MILLIGRAM 1 IN 2 WEEK
     Route: 058
  2. ENBREL [Suspect]
     Active Substance: ETANERCEPT
     Indication: PRODUCT USED FOR UNKNOWN INDICATION
     Dosage: UNK
     Route: 065

REACTIONS (9)
  - Pain [Unknown]
  - Rash [Unknown]
  - Ankylosing spondylitis [Unknown]
  - Therapeutic product effect decreased [Unknown]
  - Therapeutic response shortened [Unknown]
  - Pain in extremity [Unknown]
  - Drug ineffective [Unknown]
  - Joint swelling [Unknown]
  - Arthralgia [Not Recovered/Not Resolved]
